FAERS Safety Report 21167589 (Version 2)
Quarter: 2025Q2

REPORT INFORMATION
  Report Type: Spontaneous
  Country: GB (occurrence: GB)
  Receive Date: 20220803
  Receipt Date: 20250401
  Transmission Date: 20250716
  Serious: Yes (Hospitalization)
  Sender: ROCHE
  Company Number: GB-ROCHE-3131803

PATIENT
  Age: 80 Year
  Sex: Female

DRUGS (1)
  1. TOCILIZUMAB [Suspect]
     Active Substance: TOCILIZUMAB
     Indication: Rheumatoid arthritis
     Route: 058
     Dates: start: 202203

REACTIONS (7)
  - Peroneal nerve palsy [Unknown]
  - Rash [Unknown]
  - Oedema peripheral [Unknown]
  - Diarrhoea [Unknown]
  - Product temperature excursion issue [Unknown]
  - Neurotoxicity [Unknown]
  - Peroneal nerve palsy [Unknown]
